FAERS Safety Report 17504508 (Version 3)
Quarter: 2020Q4

REPORT INFORMATION
  Report Type: Spontaneous
  Country: US (occurrence: US)
  Receive Date: 20200305
  Receipt Date: 20201126
  Transmission Date: 20210113
  Serious: No
  Sender: FDA-Public Use
  Company Number: US-SA-2020SA053475

PATIENT

DRUGS (18)
  1. COENZYME Q10 [Concomitant]
     Active Substance: DIETARY SUPPLEMENT\UBIDECARENONE
  2. URSODIOL. [Concomitant]
     Active Substance: URSODIOL
  3. DEPO-MEDROL [Concomitant]
     Active Substance: METHYLPREDNISOLONE ACETATE
  4. VITAMIN C [Concomitant]
     Active Substance: ASCORBIC ACID
  5. SODIUM CHLORIDE 0.9% [Concomitant]
     Active Substance: SODIUM CHLORIDE
  6. FIBER [Concomitant]
     Active Substance: PSYLLIUM HUSK
  7. LORAZEPAM. [Concomitant]
     Active Substance: LORAZEPAM
  8. CALCITRIOL. [Concomitant]
     Active Substance: CALCITRIOL
  9. KEVZARA [Suspect]
     Active Substance: SARILUMAB
     Indication: RHEUMATOID ARTHRITIS
     Dosage: 200 MG, QOW
     Route: 058
     Dates: start: 20200223
  10. ROSUVASTATIN. [Concomitant]
     Active Substance: ROSUVASTATIN
  11. OMEGA 3-6-9 [FISH OIL] [Concomitant]
  12. AUROVELA FE 1/20 [Concomitant]
     Active Substance: ETHINYL ESTRADIOL\NORETHINDRONE ACETATE
  13. CALCIUM [Concomitant]
     Active Substance: CALCIUM
  14. TURMERIC [CURCUMA LONGA] [Concomitant]
     Active Substance: HERBALS\TURMERIC
  15. VITAMIN E [Concomitant]
     Active Substance: .ALPHA.-TOCOPHEROL
  16. BIOTIN [Concomitant]
     Active Substance: BIOTIN
  17. IRON [FERROUS SULFATE] [Concomitant]
  18. SYNTHROID [Concomitant]
     Active Substance: LEVOTHYROXINE SODIUM

REACTIONS (6)
  - Injection site pain [Unknown]
  - Liver function test increased [Unknown]
  - Headache [Unknown]
  - Nausea [Unknown]
  - Injection site swelling [Unknown]
  - Rash [Unknown]

NARRATIVE: CASE EVENT DATE: 20200223
